FAERS Safety Report 10381109 (Version 1)
Quarter: 2014Q1

REPORT INFORMATION
  Report Type: Spontaneous
  Country: US (occurrence: None)
  Receive Date: 20140306
  Receipt Date: 20140306
  Transmission Date: 20141002
  Serious: Yes (Hospitalization, Other)
  Sender: FDA-Public Use
  Company Number: 163-21880-13030260

PATIENT
  Age: 75 Year
  Sex: Male
  Weight: 100.7 kg

DRUGS (2)
  1. REVLIMID (LENALIDOMIDE) (10 MILLIGRAM, CAPSULES) [Suspect]
     Indication: PLASMA CELL MYELOMA
     Route: 048
     Dates: start: 20130119, end: 20130208
  2. DECADRON (DEXAMETHASONE) [Concomitant]

REACTIONS (7)
  - Troponin increased [None]
  - Pneumonia [None]
  - Ear pain [None]
  - Headache [None]
  - Dyspnoea [None]
  - Fatigue [None]
  - Dizziness [None]
